FAERS Safety Report 10172070 (Version 3)
Quarter: 2014Q2

REPORT INFORMATION
  Report Type: Spontaneous
  Country: US (occurrence: US)
  Receive Date: 20140515
  Receipt Date: 20140528
  Transmission Date: 20141212
  Serious: Yes (Hospitalization, Other)
  Sender: FDA-Public Use
  Company Number: PHEH2013US023761

PATIENT
  Sex: Female

DRUGS (21)
  1. DIOVAN [Suspect]
     Indication: HYPERTENSION
     Dosage: 325 MG, QD
     Route: 048
     Dates: start: 2012
  2. DIOVAN [Suspect]
     Dosage: 160 MG, QD
     Route: 048
     Dates: start: 201206
  3. DIOVAN [Suspect]
     Dosage: 80 MG, QD
  4. DIOVAN [Suspect]
     Dosage: 1/3 OF A TABLET
  5. DIOVAN [Suspect]
     Dosage: UNK UKN, UNK
     Dates: end: 20140519
  6. LOPRESSOR [Suspect]
     Dosage: 0.5 DF (METO 50 MG), BID
     Route: 048
     Dates: start: 20140511
  7. DILTIAZEM [Suspect]
     Dosage: UNK UKN, UNK
  8. METOPROLOL [Suspect]
     Dosage: UNK UKN, UNK
  9. METOPROLOL [Suspect]
     Dosage: UNK UKN, UNK
  10. METOPROLOL [Suspect]
     Dosage: 50 MG, UNK
  11. METOPROLOL [Suspect]
     Dosage: 100 MG, UNK
  12. METOPROLOL [Suspect]
     Dosage: 0.5 DF, (25 MG PILL, LOW DOSE)
  13. METOPROLOL [Suspect]
     Dosage: 0.75 DF, (25 MG) BID
  14. METOPROLOL [Suspect]
     Dosage: UNK UKN, UNK
  15. XANAX [Suspect]
     Dosage: UNK UKN, UNK
  16. BYSTOLIC [Suspect]
     Dosage: UNK UKN, UNK
  17. LEXAPRO [Suspect]
     Dosage: UNK UKN, UNK
  18. LEXAPRO [Suspect]
     Dosage: 0.5 DF, BID (0.25 MG)
  19. KINEVAC [Suspect]
     Dosage: (OVER 60 MIN)
     Route: 042
  20. KINEVAC [Suspect]
     Dosage: UNK UKN, UNK
  21. CENTRUM [Concomitant]
     Dosage: UNK UKN, UNK

REACTIONS (39)
  - Palpitations [Unknown]
  - Road traffic accident [Unknown]
  - Supraventricular tachycardia [Unknown]
  - Hypotension [Unknown]
  - Concussion [Unknown]
  - Blood pressure increased [Unknown]
  - Lactose intolerance [Unknown]
  - Erythema [Recovered/Resolved]
  - Pain in extremity [Recovered/Resolved]
  - Dysgeusia [Unknown]
  - Gastrointestinal disorder [Recovered/Resolved]
  - Muscle tightness [Unknown]
  - Aphagia [Unknown]
  - Gastritis [Unknown]
  - Sleep disorder [Unknown]
  - Weight decreased [Unknown]
  - Gallbladder disorder [Unknown]
  - Skin discolouration [Unknown]
  - Spider vein [Unknown]
  - Muscle spasms [Recovered/Resolved]
  - Gait disturbance [Unknown]
  - Malaise [Unknown]
  - Gastric disorder [Unknown]
  - Tremor [Recovered/Resolved]
  - Chest pain [Unknown]
  - Somnolence [Unknown]
  - Rash [Unknown]
  - Asthenia [Unknown]
  - Abdominal pain [Unknown]
  - Nausea [Recovered/Resolved]
  - Diarrhoea [Recovered/Resolved]
  - Limb discomfort [Unknown]
  - Myalgia [Unknown]
  - Neuropathy peripheral [Unknown]
  - Blood pressure decreased [Unknown]
  - Foot deformity [Unknown]
  - Pain [Unknown]
  - Dizziness [Unknown]
  - Wrong technique in drug usage process [Unknown]
